FAERS Safety Report 9734251 (Version 1)
Quarter: 2013Q4

REPORT INFORMATION
  Report Type: Spontaneous
  Country: US (occurrence: US)
  Receive Date: 20131205
  Receipt Date: 20131205
  Transmission Date: 20140711
  Serious: Yes (Other)
  Sender: FDA-Public Use
  Company Number: US-AMGEN-USASP2013085101

PATIENT
  Age: 64 Year
  Sex: Female

DRUGS (10)
  1. PEGFILGRASTIM [Suspect]
     Indication: BREAST CANCER
     Dosage: 6 MG, ON DAY 2, CYCLE= 14 DAYS (CYCLE 1-4)
     Route: 058
     Dates: start: 20081109
  2. BEVACIZUMAB [Suspect]
     Indication: BREAST CANCER
     Dosage: 10 MG/KG, Q14 D
     Route: 042
     Dates: start: 20080911
  3. BEVACIZUMAB [Suspect]
     Dosage: 780 MG, OVER 30-90 MIN ON DAY 1 CYCLE =14 DAYS (CYCLE 1-4)
     Route: 042
     Dates: start: 20081109
  4. BEVACIZUMAB [Suspect]
     Dosage: 780 MG, OVER 30-90 MIN ON DAY 1 CYCLE =21 DAYS (CYCLE  5-8)
     Route: 042
     Dates: start: 20081109
  5. DOXORUBICIN [Suspect]
     Indication: BREAST CANCER
     Dosage: 60 MG/M2, 1 IN 14 D
     Route: 042
     Dates: start: 20080911
  6. DOXORUBICIN [Suspect]
     Dosage: 114 MG, ON DAY 1 CYCLE= 14 DAYS (CYCLES 1-4)
     Route: 042
     Dates: start: 20081109
  7. PACLITAXEL [Suspect]
     Indication: BREAST CANCER
     Dosage: 80 MG/M2, 3 IN 1 CYCLICAL, DAYS 1, 8, AND 15
     Route: 042
     Dates: start: 20080911
  8. PACLITAXEL [Suspect]
     Dosage: 80 MG/M2, OVER 1 HR ON DAYS 1, 8 AND 15 CYCLE =21 DAYS (CYCLE 5-8)
     Route: 042
     Dates: start: 20081109
  9. CYCLOPHOSPHAMIDE [Concomitant]
     Indication: BREAST CANCER
     Dosage: 600 MG/M2, 1 IN 14 D
     Route: 042
     Dates: start: 20080911
  10. CYCLOPHOSPHAMIDE [Concomitant]
     Dosage: 1140 MG, OVER 20-30 MIN ON DAY 1CYCLE= 14 DAYS (CYCLE 1-4)
     Route: 042
     Dates: start: 20081109

REACTIONS (2)
  - Ejection fraction decreased [Recovered/Resolved]
  - Left ventricular dysfunction [Unknown]
